FAERS Safety Report 4459073-2 (Version None)
Quarter: 2004Q3

REPORT INFORMATION
  Report Type: 
  Country: None (occurrence: None)
  Receive Date: 20040920
  Receipt Date: 20040920
  Transmission Date: 20050211
  Serious: Yes (Life-Threatening, Hospitalization)
  Sender: FDA-Public Use
  Company Number: None

PATIENT
  Age: 48 Year
  Sex: Male
  Weight: 76.4 kg

DRUGS (1)
  1. WARFARIN SODIUM [Suspect]
     Indication: DEEP VEIN THROMBOSIS
     Dosage: 10 MG PO DAILY
     Route: 048

REACTIONS (5)
  - CARDIOLIPIN ANTIBODY [None]
  - DEEP VEIN THROMBOSIS [None]
  - DISEASE RECURRENCE [None]
  - FACTOR V LEIDEN MUTATION [None]
  - INTERNATIONAL NORMALISED RATIO DECREASED [None]
